FAERS Safety Report 4971380-3 (Version None)
Quarter: 2006Q2

REPORT INFORMATION
  Report Type: 
  Country: None (occurrence: None)
  Receive Date: 20060406
  Receipt Date: 20060327
  Transmission Date: 20061013
  Serious: Yes (Death)
  Sender: FDA-Public Use
  Company Number: CN200603006504

PATIENT
  Age: 83 Year
  Sex: Female

DRUGS (2)
  1. ZYPREXA [Suspect]
     Indication: SCHIZOPHRENIA
     Dosage: SEE IMAGE, ORAL
     Route: 048
     Dates: start: 20051211, end: 20051215
  2. CLONAZEPAM [Concomitant]

REACTIONS (3)
  - LUNG INFECTION [None]
  - RESTLESSNESS [None]
  - SOMNOLENCE [None]
